FAERS Safety Report 25926332 (Version 1)
Quarter: 2025Q4

REPORT INFORMATION
  Report Type: Spontaneous
  Country: GB (occurrence: GB)
  Receive Date: 20251015
  Receipt Date: 20251015
  Transmission Date: 20260118
  Serious: Yes (Life-Threatening, Hospitalization, Other)
  Sender: ELI LILLY AND COMPANY
  Company Number: GB-MHRA-TPP1950946C3795397YC1760086732981

PATIENT
  Age: 49 Year
  Sex: Male
  Weight: 95 kg

DRUGS (8)
  1. MOUNJARO [Suspect]
     Active Substance: TIRZEPATIDE
     Indication: Ill-defined disorder
     Dosage: 2.5 MG, UNKNOWN
     Route: 065
  2. COCODAMOL [Concomitant]
     Active Substance: ACETAMINOPHEN\CODEINE PHOSPHATE
     Indication: Ill-defined disorder
     Dosage: UNK UNK, OTHER (TAKE 1 OR 2 4 TIMES/DAY)
     Route: 065
     Dates: start: 20250916, end: 20250917
  3. CIPROFLOXACIN [Concomitant]
     Active Substance: CIPROFLOXACIN
     Indication: Ill-defined disorder
     Dosage: UNK UNK, UNKNOWN (TAKE ONE TWICE DAILY)
     Route: 065
     Dates: start: 20250925, end: 20250930
  4. METRONIDAZOLE [Concomitant]
     Active Substance: METRONIDAZOLE
     Indication: Ill-defined disorder
     Dosage: UNK UNK, UNKNOWN (TAKE ONE 3 TIMES/DAY
     Route: 065
     Dates: start: 20250925, end: 20251002
  5. SERTRALINE [Concomitant]
     Active Substance: SERTRALINE HYDROCHLORIDE
     Indication: Ill-defined disorder
     Dosage: UNK UNK, UNKNOWN (TAKE ONE TABLET DAILY)
     Route: 065
     Dates: start: 20240708
  6. BECLOMETHASONE DIPROPIONATE [Concomitant]
     Active Substance: BECLOMETHASONE DIPROPIONATE
     Indication: Ill-defined disorder
     Dosage: UNK UNK, UNKNOWN (INHALE 2 DOSES TWICE DAILY)
     Route: 065
     Dates: start: 20250320
  7. ALBUTEROL [Concomitant]
     Active Substance: ALBUTEROL
     Indication: Ill-defined disorder
     Dosage: UNK UNK, UNKNOWN (INHALE 2 DOSES AS NEEDED)
     Route: 065
     Dates: start: 20250320
  8. RAMIPRIL [Concomitant]
     Active Substance: RAMIPRIL
     Indication: Ill-defined disorder
     Dosage: UNK UNK, DAILY
     Route: 065
     Dates: start: 20250715

REACTIONS (1)
  - Pancreatitis acute [Recovering/Resolving]
